FAERS Safety Report 7383423-0 (Version None)
Quarter: 2011Q1

REPORT INFORMATION
  Report Type: 
  Country: None (occurrence: None)
  Receive Date: 20110330
  Receipt Date: 20110328
  Transmission Date: 20110831
  Serious: Yes (Hospitalization)
  Sender: FDA-Public Use
  Company Number: FR-SANOFI-AVENTIS-2011SA018815

PATIENT
  Age: 85 Year
  Sex: Female

DRUGS (7)
  1. NITRODERM [Suspect]
     Route: 062
  2. LASIX [Interacting]
     Route: 048
  3. CELESTONE [Concomitant]
  4. NOVORAPID [Concomitant]
  5. NOVOMIX [Concomitant]
  6. PERINDOPRIL [Suspect]
     Route: 048
  7. TAHOR [Concomitant]
     Route: 048

REACTIONS (4)
  - FACIAL BONES FRACTURE [None]
  - BLOOD CREATININE INCREASED [None]
  - ORTHOSTATIC HYPOTENSION [None]
  - FALL [None]
